FAERS Safety Report 19307578 (Version 1)
Quarter: 2021Q2

REPORT INFORMATION
  Report Type: Spontaneous
  Country: GB (occurrence: GB)
  Receive Date: 20210526
  Receipt Date: 20210526
  Transmission Date: 20210717
  Serious: Yes (Other)
  Sender: FDA-Public Use
  Company Number: GB-ACCORD-226112

PATIENT
  Age: 21 Year
  Sex: Male
  Weight: 56 kg

DRUGS (2)
  1. FINASTERIDE ACCORD HEALTHCARE [Suspect]
     Active Substance: FINASTERIDE
     Indication: ALOPECIA
     Route: 048
     Dates: start: 20210405
  2. AVAMYS [Concomitant]
     Active Substance: FLUTICASONE FUROATE

REACTIONS (1)
  - Alcohol intolerance [Recovered/Resolved]

NARRATIVE: CASE EVENT DATE: 20210410
